FAERS Safety Report 6341295-7 (Version None)
Quarter: 2009Q3

REPORT INFORMATION
  Report Type: 
  Country: None (occurrence: None)
  Receive Date: 20090904
  Receipt Date: 20090828
  Transmission Date: 20100115
  Serious: Yes (Other)
  Sender: FDA-Public Use
  Company Number: US-JNJCH-2009023456

PATIENT
  Age: 41 Year
  Sex: Male
  Weight: 86.2 kg

DRUGS (1)
  1. DRAMAMINE LESS DROWSY FORMULA [Suspect]
     Indication: DRUG USE FOR UNKNOWN INDICATION
     Dosage: TEXT:1 TABLET ONCE
     Route: 048
     Dates: start: 20090827, end: 20090827

REACTIONS (3)
  - DIZZINESS [None]
  - FEELING ABNORMAL [None]
  - VISION BLURRED [None]
